FAERS Safety Report 19196007 (Version 2)
Quarter: 2021Q2

REPORT INFORMATION
  Report Type: Report from Study
  Country: AR (occurrence: AR)
  Receive Date: 20210429
  Receipt Date: 20210627
  Transmission Date: 20210717
  Serious: Yes (Hospitalization, Other)
  Sender: FDA-Public Use
  Company Number: NVSC2021AR092257

PATIENT
  Age: 25 Year
  Sex: Female

DRUGS (28)
  1. COSENTYX [Suspect]
     Active Substance: SECUKINUMAB
     Dosage: 300 MG, QD ,(SECOND APPLICATION)
     Route: 058
     Dates: start: 20200102
  2. COSENTYX [Suspect]
     Active Substance: SECUKINUMAB
     Dosage: 300 MG, QD,(THIRD APPLICATION)
     Route: 058
     Dates: start: 20200111
  3. DELTISONA B (MEPREDNISONE) [Suspect]
     Active Substance: MEPREDNISONE
     Dosage: 40 MG, QD
     Route: 065
     Dates: start: 20200807, end: 20200814
  4. COSENTYX [Suspect]
     Active Substance: SECUKINUMAB
     Indication: PSORIATIC ARTHROPATHY
     Dosage: 300 MG, QMO
     Route: 058
     Dates: start: 20191219
  5. COSENTYX [Suspect]
     Active Substance: SECUKINUMAB
     Dosage: 300 MG, QD,(FOURTH APPLICATION)
     Route: 058
     Dates: start: 20200120
  6. DELTISONA B (MEPREDNISONE) [Suspect]
     Active Substance: MEPREDNISONE
     Dosage: 60 MG,(IN THE MORNING)
     Route: 065
  7. DELTISONA B (MEPREDNISONE) [Suspect]
     Active Substance: MEPREDNISONE
     Dosage: 60 MG, QD (STOP DATE WAS 24 AUG )
     Route: 065
     Dates: start: 20190724
  8. DELTISONA B (MEPREDNISONE) [Suspect]
     Active Substance: MEPREDNISONE
     Dosage: 20 MG, QD (START DATE 25 AUG AND STOP DATE 31 AUG)
     Route: 065
  9. DELTISONA B (MEPREDNISONE) [Suspect]
     Active Substance: MEPREDNISONE
     Dosage: 10 MG, QD (START DATE WAS 01 SEP AND STOP DATE WAS 07 SEP)
     Route: 065
  10. DELTISONA B (MEPREDNISONE) [Suspect]
     Active Substance: MEPREDNISONE
     Dosage: 50 MG
     Route: 065
     Dates: start: 20200422, end: 20200427
  11. ARTRAIT [Concomitant]
     Active Substance: METHOTREXATE SODIUM
     Indication: PSORIATIC ARTHROPATHY
     Dosage: 10 MG, UNKNOWN
     Route: 065
     Dates: start: 20190606, end: 20190704
  12. DELTISONA B (MEPREDNISONE) [Suspect]
     Active Substance: MEPREDNISONE
     Dosage: 50 MG (08 AUG)
     Route: 065
  13. DELTISONA B (MEPREDNISONE) [Suspect]
     Active Substance: MEPREDNISONE
     Dosage: 40 MG
     Route: 065
     Dates: start: 20200908
  14. ALPLAX [Concomitant]
     Active Substance: ALPRAZOLAM
     Indication: PRODUCT USED FOR UNKNOWN INDICATION
     Dosage: 0.25 MG ,(1 OF 0.25MG) (MORNG AND BED TIME)
     Route: 065
  15. DELTISONA B (MEPREDNISONE) [Suspect]
     Active Substance: MEPREDNISONE
     Dosage: UNK, QD (? OF 40MG)
     Route: 065
     Dates: start: 20190603, end: 20190610
  16. DELTISONA B (MEPREDNISONE) [Suspect]
     Active Substance: MEPREDNISONE
     Dosage: 60 MG
     Route: 065
  17. COSENTYX [Suspect]
     Active Substance: SECUKINUMAB
     Indication: PSORIASIS
     Dosage: 300 MG, QD
     Route: 058
     Dates: start: 20191226, end: 20200302
  18. DELTISONA B (MEPREDNISONE) [Suspect]
     Active Substance: MEPREDNISONE
     Indication: THROMBOCYTOPENIA
     Dosage: 40 MG
     Route: 065
  19. DELTISONA B (MEPREDNISONE) [Suspect]
     Active Substance: MEPREDNISONE
     Dosage: UNK
     Route: 042
  20. DELTISONA B (MEPREDNISONE) [Suspect]
     Active Substance: MEPREDNISONE
     Dosage: 20 MG, QD
     Route: 065
     Dates: start: 20200817, end: 20200818
  21. DELTISONA B (MEPREDNISONE) [Suspect]
     Active Substance: MEPREDNISONE
     Dosage: 60 MG,(POST DINNER)
     Route: 065
     Dates: start: 20210509
  22. DELTISONA B (MEPREDNISONE) [Suspect]
     Active Substance: MEPREDNISONE
     Dosage: 40 MG, QD
     Route: 065
     Dates: start: 20190520
  23. DELTISONA B (MEPREDNISONE) [Suspect]
     Active Substance: MEPREDNISONE
     Dosage: UNK, QD (? OF 40MG), EVERY OTHER DAY
     Route: 065
     Dates: start: 20190610, end: 20190618
  24. DELTISONA B (MEPREDNISONE) [Suspect]
     Active Substance: MEPREDNISONE
     Dosage: 40 UNK
     Route: 065
     Dates: start: 20200427, end: 20200504
  25. DELTISONA B (MEPREDNISONE) [Suspect]
     Active Substance: MEPREDNISONE
     Dosage: 30 MG, QD
     Route: 065
     Dates: start: 20200815, end: 20200816
  26. DELTISONA B (MEPREDNISONE) [Suspect]
     Active Substance: MEPREDNISONE
     Dosage: 10 MG, QD
     Route: 065
     Dates: start: 20200819, end: 20200820
  27. DELTISONA B (MEPREDNISONE) [Suspect]
     Active Substance: MEPREDNISONE
     Dosage: 40 MG, QD (19 AUG)
     Route: 065
     Dates: start: 20190815
  28. DELTISONA B (MEPREDNISONE) [Suspect]
     Active Substance: MEPREDNISONE
     Dosage: 30 UNK (START DATE 20 AUG AND STOP DATE 24 AUG)
     Route: 065

REACTIONS (31)
  - Gastroenteritis [Unknown]
  - Thrombocytopenia [Recovered/Resolved]
  - Haematoma [Recovered/Resolved]
  - Corynebacterium infection [Unknown]
  - Psoriatic arthropathy [Unknown]
  - Vision blurred [Recovered/Resolved]
  - Myalgia [Recovered/Resolved]
  - Abdominal pain [Unknown]
  - Sinusitis [Recovered/Resolved]
  - Haemorrhage [Recovered/Resolved]
  - Dry eye [Recovered/Resolved]
  - Tachycardia [Recovered/Resolved]
  - Tremor [Recovered/Resolved]
  - Disturbance in attention [Recovered/Resolved]
  - Back pain [Recovered/Resolved]
  - Steroid withdrawal syndrome [Recovered/Resolved]
  - Arthritis [Unknown]
  - Clostridium difficile colitis [Unknown]
  - Chlamydia test positive [Recovered/Resolved]
  - Back pain [Unknown]
  - Inflammation [Recovered/Resolved]
  - Oropharyngeal pain [Recovered/Resolved]
  - Headache [Recovered/Resolved]
  - Pyrexia [Recovered/Resolved]
  - Gynaecological chlamydia infection [Unknown]
  - Visual impairment [Unknown]
  - Urinary tract infection [Unknown]
  - Anaemia [Unknown]
  - Heavy menstrual bleeding [Recovered/Resolved]
  - Petechiae [Unknown]
  - Pharyngitis [Unknown]

NARRATIVE: CASE EVENT DATE: 20190508
